FAERS Safety Report 9277487 (Version 1)
Quarter: 2013Q2

REPORT INFORMATION
  Report Type: Spontaneous
  Country: CN (occurrence: CN)
  Receive Date: 20130508
  Receipt Date: 20130508
  Transmission Date: 20140414
  Serious: Yes (Other)
  Sender: FDA-Public Use
  Company Number: CN-JNJFOC-20130417203

PATIENT
  Age: 77 Year
  Sex: Male

DRUGS (1)
  1. SPORANOX [Suspect]
     Indication: PULMONARY MYCOSIS
     Dosage: 3 VIALS/TIME
     Route: 042
     Dates: start: 201210, end: 201211

REACTIONS (1)
  - Hallucination [Unknown]
